FAERS Safety Report 4705243-5 (Version None)
Quarter: 2005Q2

REPORT INFORMATION
  Report Type: 
  Country: None (occurrence: None)
  Receive Date: 20050629
  Receipt Date: 20050614
  Transmission Date: 20051028
  Serious: Yes (Other)
  Sender: FDA-Public Use
  Company Number: 2005AL002274

PATIENT
  Age: 54 Year
  Sex: Female

DRUGS (1)
  1. NIFEDIPINE [Suspect]
     Indication: HYPERTENSION
     Dosage: 30 MG;QD;

REACTIONS (5)
  - ANXIETY [None]
  - HEADACHE POSTOPERATIVE [None]
  - HYPERTENSIVE CRISIS [None]
  - MEDICATION ERROR [None]
  - SINUS TACHYCARDIA [None]
